FAERS Safety Report 5700197-7 (Version None)
Quarter: 2008Q2

REPORT INFORMATION
  Report Type: 
  Country: None (occurrence: None)
  Receive Date: 20080409
  Receipt Date: 20051130
  Transmission Date: 20081010
  Serious: Yes (Hospitalization)
  Sender: FDA-Public Use
  Company Number: GB-JNJFOC-20080401375

PATIENT
  Age: 44 Year
  Sex: Male

DRUGS (2)
  1. IBUPROFEN [Suspect]
     Indication: ARTHRALGIA
     Route: 048
  2. IBUPROFEN [Suspect]
     Indication: BACK PAIN
     Dosage: 200-400MG
     Route: 048

REACTIONS (4)
  - DECREASED APPETITE [None]
  - DUODENAL ULCER PERFORATION [None]
  - HELICOBACTER INFECTION [None]
  - WEIGHT DECREASED [None]
